FAERS Safety Report 15694793 (Version 1)
Quarter: 2018Q4

REPORT INFORMATION
  Report Type: Spontaneous
  Country: US (occurrence: US)
  Receive Date: 20181126
  Receipt Date: 20181126
  Transmission Date: 20190205
  Serious: Yes (Hospitalization)
  Sender: FDA-Public Use
  Company Number: None

PATIENT
  Age: 41 Year
  Sex: Female
  Weight: 91 kg

DRUGS (25)
  1. METHOTREXATE. [Suspect]
     Active Substance: METHOTREXATE
     Dosage: ?          OTHER DOSE:12.5MG;?
     Dates: end: 20180605
  2. LORAZEPAM. [Concomitant]
     Active Substance: LORAZEPAM
  3. NEUPOGEN [Concomitant]
     Active Substance: FILGRASTIM
  4. ONCASPAR [Suspect]
     Active Substance: PEGASPARGASE
     Dates: end: 20180608
  5. PEG 3350 POWDER FOR ORAL SOLUTION [Concomitant]
  6. CIPROFLOXACIN. [Concomitant]
     Active Substance: CIPROFLOXACIN
  7. SULFAMETHOXAZOL/TRIMETHOPRIM [Concomitant]
     Active Substance: SULFAMETHOXAZOLE\TRIMETHOPRIM
  8. DAUNORUBICIN [Suspect]
     Active Substance: DAUNORUBICIN
     Dates: end: 20180612
  9. DALTEPARIN [Concomitant]
     Active Substance: DALTEPARIN
  10. IODOCANE [Concomitant]
  11. CYTARABINE. [Suspect]
     Active Substance: CYTARABINE
     Dates: end: 20180522
  12. ACETAMINOPHEN. [Concomitant]
     Active Substance: ACETAMINOPHEN
  13. IBUPROFEN. [Concomitant]
     Active Substance: IBUPROFEN
  14. PANTOPRAZOLE [Concomitant]
     Active Substance: PANTOPRAZOLE
  15. PHYTONADION LIQUID [Concomitant]
  16. VANCCMYCIN [Concomitant]
  17. DEXAMETHASONE. [Suspect]
     Active Substance: DEXAMETHASONE
     Dates: end: 20180611
  18. POTASSIUM CHLORIDE. [Concomitant]
     Active Substance: POTASSIUM CHLORIDE
  19. HANEXAMIC ACID [Concomitant]
  20. VITAMIN B COMPLEX [Concomitant]
     Active Substance: CYANOCOBALAMIN\DEXPANTHENOL\NIACINAMIDE\PYRIDOXINE HYDROCHLORIDE\RIBOFLAVIN 5^-PHOSPHATE SODIUM\THIAMINE HYDROCHLORIDE\VITAMIN B COMPLEX
  21. NABILONE [Concomitant]
     Active Substance: NABILONE
  22. MORPHINE [Concomitant]
     Active Substance: MORPHINE
  23. PIPERACYCLIN/TAZOBACTAM [Concomitant]
  24. VINCRISTINE SULFATE. [Suspect]
     Active Substance: VINCRISTINE SULFATE
     Dates: end: 20180612
  25. MIDAZOLAM [Concomitant]
     Active Substance: MIDAZOLAM HYDROCHLORIDE

REACTIONS (5)
  - Abdominal pain [None]
  - Diarrhoea [None]
  - Febrile neutropenia [None]
  - Diverticulitis [None]
  - Anal fistula [None]

NARRATIVE: CASE EVENT DATE: 20180614
